FAERS Safety Report 4874733-7 (Version None)
Quarter: 2006Q1

REPORT INFORMATION
  Report Type: 
  Country: None (occurrence: None)
  Receive Date: 20060105
  Receipt Date: 20060105
  Transmission Date: 20060701
  Serious: Yes (Hospitalization, Other)
  Sender: FDA-Public Use
  Company Number: None

PATIENT
  Sex: Female
  Weight: 57.9 kg

DRUGS (5)
  1. RITUXAN [Suspect]
     Indication: DIFFUSE LARGE B-CELL LYMPHOMA
     Dosage: SEE IMAGE
     Route: 042
     Dates: start: 20051224
  2. CYTOXAN [Suspect]
     Dosage: SEE IMAGE
     Route: 042
  3. DOXIL [Suspect]
     Dosage: SEE IMAGE
     Route: 042
     Dates: start: 20051224
  4. VINCRISTINE [Suspect]
     Dosage: SEE IMAGE
     Route: 042
  5. PREDNISONE [Suspect]
     Dosage: SEE IMAGE
     Route: 048

REACTIONS (5)
  - FATIGUE [None]
  - NEUTROPHIL COUNT DECREASED [None]
  - PRODUCTIVE COUGH [None]
  - PYREXIA [None]
  - RHINITIS [None]
